FAERS Safety Report 13720260 (Version 1)
Quarter: 2017Q3

REPORT INFORMATION
  Report Type: Other
  Country: DE (occurrence: DE)
  Receive Date: 20170706
  Receipt Date: 20170706
  Transmission Date: 20171127
  Serious: No
  Sender: FDA-Public Use
  Company Number: DE-LUPIN PHARMACEUTICALS INC.-E2B_00007014

PATIENT
  Sex: Male
  Weight: 86 kg

DRUGS (8)
  1. ATORVASTATIN [Suspect]
     Active Substance: ATORVASTATIN
     Indication: CORONARY ARTERY DISEASE
     Dosage: 40 MG,UNK,UNKNOWN
     Route: 048
     Dates: start: 20131018, end: 20131217
  2. SIMVASTATIN. [Suspect]
     Active Substance: SIMVASTATIN
     Indication: CORONARY ARTERY DISEASE
     Dosage: 20 MG,UNK,UNKNOWN
     Route: 048
     Dates: start: 20130801, end: 20131017
  3. SIMVASTATIN. [Suspect]
     Active Substance: SIMVASTATIN
     Dosage: UNK UNK,UNK,UNKNOWN
     Route: 048
  4. EZETROL [Suspect]
     Active Substance: EZETIMIBE
     Indication: CORONARY ARTERY DISEASE
     Dosage: 10 MG,UNK,UNKNOWN
     Route: 048
     Dates: start: 20140903, end: 20150625
  5. ATORVASTATIN [Suspect]
     Active Substance: ATORVASTATIN
     Dosage: UNK UNK,UNK,UNKNOWN
     Route: 048
  6. EZETROL [Suspect]
     Active Substance: EZETIMIBE
     Dosage: UNK UNK,UNK,UNKNOWN
     Route: 048
  7. INEGY [Suspect]
     Active Substance: EZETIMIBE\SIMVASTATIN
     Indication: CORONARY ARTERY DISEASE
     Dosage: 1 DF,UNK,UNKNOWN
     Route: 048
     Dates: start: 20140317, end: 20140509
  8. INEGY [Suspect]
     Active Substance: EZETIMIBE\SIMVASTATIN
     Dosage: UNK UNK,UNK,UNKNOWN
     Route: 048

REACTIONS (1)
  - Myalgia [Recovering/Resolving]
